FAERS Safety Report 19201666 (Version 1)
Quarter: 2021Q2

REPORT INFORMATION
  Report Type: Spontaneous
  Country: DE (occurrence: DE)
  Receive Date: 20210430
  Receipt Date: 20210430
  Transmission Date: 20210717
  Serious: Yes (Hospitalization)
  Sender: FDA-Public Use
  Company Number: DE-GW PHARMA-202104DEGW02036

PATIENT

DRUGS (3)
  1. EPIDYOLEX [Suspect]
     Active Substance: CANNABIDIOL
     Dosage: 250 MILLIGRAM, BID (IN THE MORNING AND IN THE EVENING)
     Route: 048
  2. EPIDYOLEX [Suspect]
     Active Substance: CANNABIDIOL
     Dosage: 300 MILLIGRAM, BID (IN THE MORNING AND EVENING)
     Route: 048
  3. EPIDYOLEX [Suspect]
     Active Substance: CANNABIDIOL
     Indication: EPILEPSY
     Dosage: 500 MILLIGRAM, QD (INITIALLY DOSE WAS SPLIT OVER 3 DOSES, (MORNING, MIDDAY, EVENING))
     Route: 048
     Dates: start: 201911

REACTIONS (3)
  - Generalised tonic-clonic seizure [Not Recovered/Not Resolved]
  - Product storage error [Unknown]
  - Off label use [Unknown]

NARRATIVE: CASE EVENT DATE: 20210323
